FAERS Safety Report 13549012 (Version 4)
Quarter: 2017Q3

REPORT INFORMATION
  Report Type: Spontaneous
  Country: US (occurrence: US)
  Receive Date: 20170516
  Receipt Date: 20170929
  Transmission Date: 20171127
  Serious: No
  Sender: FDA-Public Use
  Company Number: US-PFIZER INC-2017211234

PATIENT
  Age: 78 Year
  Sex: Female
  Weight: 51.25 kg

DRUGS (3)
  1. SUTENT [Suspect]
     Active Substance: SUNITINIB MALATE
     Dosage: 50 MG, CYCLIC (DAYS 1-28 Q42 DAYS)
     Route: 048
     Dates: start: 20170508, end: 20170809
  2. SUTENT [Suspect]
     Active Substance: SUNITINIB MALATE
     Indication: METASTATIC RENAL CELL CARCINOMA
     Dosage: 50 MG CYCLIC, DAYS 1-28 Q42 DAYS, (ALSO REPORTED AS 1 DAILY FOR 28 DAYS, THEN 2 WEEKS OFF)
     Route: 048
     Dates: start: 20170504
  3. SUTENT [Suspect]
     Active Substance: SUNITINIB MALATE
     Dosage: 50 MG, CYCLIC (DAYS 1-28 Q42 DAYS)
     Route: 048
     Dates: start: 20170505, end: 201709

REACTIONS (5)
  - Laboratory test abnormal [Unknown]
  - Headache [Unknown]
  - Blood thyroid stimulating hormone decreased [Unknown]
  - Neoplasm progression [Unknown]
  - Thyroid function test abnormal [Unknown]

NARRATIVE: CASE EVENT DATE: 2017
